FAERS Safety Report 7384954-X (Version None)
Quarter: 2011Q1

REPORT INFORMATION
  Report Type: 
  Country: None (occurrence: None)
  Receive Date: 20110323
  Receipt Date: 20110307
  Transmission Date: 20110831
  Serious: Yes (Disabling)
  Sender: FDA-Public Use
  Company Number: 2011P1004671

PATIENT
  Age: 78 Year
  Sex: Female

DRUGS (1)
  1. NYSTATIN [Suspect]
     Indication: FUNGAL INFECTION
     Dosage: X2;TOP
     Route: 061
     Dates: start: 20110226, end: 20110227

REACTIONS (4)
  - NASAL CONGESTION [None]
  - RHINORRHOEA [None]
  - HYPERSENSITIVITY [None]
  - SNEEZING [None]
